FAERS Safety Report 9566968 (Version 1)
Quarter: 2013Q3

REPORT INFORMATION
  Report Type: Spontaneous
  Country: US (occurrence: US)
  Receive Date: 20130930
  Receipt Date: 20130930
  Transmission Date: 20140515
  Serious: No
  Sender: FDA-Public Use
  Company Number: US-AMGEN-USASP2012060758

PATIENT
  Age: 46 Year
  Sex: Female

DRUGS (7)
  1. ENBREL [Suspect]
     Indication: PSORIASIS
     Dosage: 50 MG, QWK
     Route: 058
  2. NEXIUM                             /01479302/ [Concomitant]
     Dosage: 20 MG, UNK
  3. VYTORIN [Concomitant]
     Dosage: 10 MG, UNK
  4. KEFLEX                             /00145501/ [Concomitant]
     Dosage: 250 MG, UNK
  5. ATARAX                             /00058401/ [Concomitant]
     Dosage: 10MG/5ML, UNK
  6. DOXIDAN                            /00142601/ [Concomitant]
     Dosage: 5 MG, UNK
  7. CORTICOSTEROIDS [Concomitant]

REACTIONS (3)
  - Injection site swelling [Unknown]
  - Injection site erythema [Unknown]
  - Injection site warmth [Unknown]
